FAERS Safety Report 8225764-0 (Version None)
Quarter: 2012Q1

REPORT INFORMATION
  Report Type: 
  Country: None (occurrence: None)
  Receive Date: 20120321
  Receipt Date: 20120316
  Transmission Date: 20120608
  Serious: Yes (Other)
  Sender: FDA-Public Use
  Company Number: ES-ABBOTT-12P-144-0915749-00

PATIENT

DRUGS (1)
  1. HUMIRA [Suspect]
     Indication: SPONDYLITIS
     Dates: end: 20090901

REACTIONS (2)
  - CROHN'S DISEASE [None]
  - NON-HODGKIN'S LYMPHOMA [None]
